FAERS Safety Report 12118407 (Version 1)
Quarter: 2016Q1

REPORT INFORMATION
  Report Type: Spontaneous
  Country: US (occurrence: None)
  Receive Date: 20160224
  Receipt Date: 20160224
  Transmission Date: 20160526
  Serious: No
  Sender: FDA-Public Use
  Company Number: None

PATIENT
  Age: 74 Year
  Sex: Male
  Weight: 79.83 kg

DRUGS (1)
  1. MIRTAZAPINE. [Suspect]
     Active Substance: MIRTAZAPINE
     Indication: NERVOUSNESS
     Dosage: 1 PILL
     Route: 048
     Dates: start: 20160111, end: 20160211

REACTIONS (3)
  - Mood altered [None]
  - Insomnia [None]
  - Rash [None]

NARRATIVE: CASE EVENT DATE: 20160211
